FAERS Safety Report 14505857 (Version 2)
Quarter: 2018Q1

REPORT INFORMATION
  Report Type: Spontaneous
  Country: DE (occurrence: DE)
  Receive Date: 20180208
  Receipt Date: 20180330
  Transmission Date: 20180509
  Serious: No
  Sender: FDA-Public Use
  Company Number: DE-JNJFOC-20180208634

PATIENT
  Age: 51 Year
  Sex: Male
  Weight: 106 kg

DRUGS (2)
  1. DARZALEX [Suspect]
     Active Substance: DARATUMUMAB
     Indication: PLASMA CELL MYELOMA
     Route: 042
     Dates: start: 20170316
  2. VELCADE [Suspect]
     Active Substance: BORTEZOMIB
     Indication: PLASMA CELL MYELOMA
     Route: 058
     Dates: start: 20171127, end: 20180212

REACTIONS (1)
  - Injection site inflammation [Recovered/Resolved]

NARRATIVE: CASE EVENT DATE: 20180108
